FAERS Safety Report 11137640 (Version 1)
Quarter: 2015Q2

REPORT INFORMATION
  Report Type: Spontaneous
  Country: RU (occurrence: RU)
  Receive Date: 20150526
  Receipt Date: 20150526
  Transmission Date: 20150821
  Serious: Yes (Other)
  Sender: FDA-Public Use
  Company Number: PHHY2015RU060987

PATIENT
  Age: 43 Year
  Sex: Female
  Weight: 60 kg

DRUGS (1)
  1. TACROCEL [Suspect]
     Active Substance: TACROLIMUS
     Indication: LIVER TRANSPLANT REJECTION
     Dosage: 7 MG, QD
     Route: 048
     Dates: start: 20131015, end: 20131204

REACTIONS (5)
  - Pancreatitis [Unknown]
  - Vomiting [Unknown]
  - Nausea [Unknown]
  - Diarrhoea [Unknown]
  - Amylase increased [Unknown]

NARRATIVE: CASE EVENT DATE: 20131015
